FAERS Safety Report 16444145 (Version 1)
Quarter: 2019Q2

REPORT INFORMATION
  Report Type: Spontaneous
  Country: US (occurrence: US)
  Receive Date: 20190508
  Receipt Date: 20190508
  Transmission Date: 20190711
  Serious: Yes (Hospitalization)
  Sender: FDA-Public Use
  Company Number: None

PATIENT
  Age: 67 Year
  Sex: Male
  Weight: 92 kg

DRUGS (1)
  1. APIXABAN [Suspect]
     Active Substance: APIXABAN
     Indication: PULMONARY EMBOLISM
     Route: 048
     Dates: start: 20181215, end: 20190501

REACTIONS (4)
  - Dyspnoea [None]
  - Refusal of treatment by patient [None]
  - Pulmonary embolism [None]
  - Tachypnoea [None]

NARRATIVE: CASE EVENT DATE: 20190430
